FAERS Safety Report 11358694 (Version 1)
Quarter: 2015Q3

REPORT INFORMATION
  Report Type: Spontaneous
  Country: US (occurrence: None)
  Receive Date: 20150806
  Receipt Date: 20150806
  Transmission Date: 20151125
  Serious: No
  Sender: FDA-Public Use
  Company Number: None

PATIENT
  Sex: Male

DRUGS (17)
  1. METOPROLO [Concomitant]
     Active Substance: METOPROLOL
  2. MULTIVITAMIN [Concomitant]
     Active Substance: VITAMINS
  3. MORPHINE [Concomitant]
     Active Substance: MORPHINE
  4. PANTOPRAZOLE [Concomitant]
     Active Substance: PANTOPRAZOLE SODIUM
  5. DOCOLACE [Concomitant]
  6. FENOFIBRATE. [Concomitant]
     Active Substance: FENOFIBRATE
  7. HCTZ [Concomitant]
     Active Substance: HYDROCHLOROTHIAZIDE
  8. XGEVA [Concomitant]
     Active Substance: DENOSUMAB
  9. ZYRTEC [Concomitant]
     Active Substance: CETIRIZINE HYDROCHLORIDE
  10. CEPHALEXIN. [Concomitant]
     Active Substance: CEPHALEXIN
  11. CA CITRATE/MGOX/VITD3/B6/MIN (CALCIUM CITRATE +D WITH MAG ORAL) [Concomitant]
     Active Substance: MINERALS\VITAMINS
  12. CRESTOR [Concomitant]
     Active Substance: ROSUVASTATIN CALCIUM
  13. AFINITOR [Suspect]
     Active Substance: EVEROLIMUS
     Indication: RENAL CANCER
     Route: 048
     Dates: start: 20140513
  14. WARFARIN [Concomitant]
     Active Substance: WARFARIN
  15. FLAX SEED [Concomitant]
     Active Substance: FLAX SEED
  16. CALCIUM [Concomitant]
     Active Substance: CALCIUM
  17. IRON [Concomitant]
     Active Substance: IRON

REACTIONS (1)
  - Palmar-plantar erythrodysaesthesia syndrome [None]
